FAERS Safety Report 6039484-4 (Version None)
Quarter: 2009Q1

REPORT INFORMATION
  Report Type: 
  Country: None (occurrence: None)
  Receive Date: 20090114
  Receipt Date: 20081231
  Transmission Date: 20090719
  Serious: Yes (Other)
  Sender: FDA-Public Use
  Company Number: CHPA2008US23893

PATIENT
  Age: 45 Year
  Sex: Male

DRUGS (3)
  1. NICOTINE [Suspect]
     Indication: SMOKING CESSATION THERAPY
     Dosage: 14 MG, OD, TRANSDERMAL
     Route: 062
     Dates: start: 20081227
  2. ACETAMINOPHEN [Concomitant]
  3. HYDROXYZINE [Concomitant]

REACTIONS (3)
  - DEAFNESS UNILATERAL [None]
  - NIGHTMARE [None]
  - TREATMENT NONCOMPLIANCE [None]
